FAERS Safety Report 4939820-3 (Version None)
Quarter: 2006Q1

REPORT INFORMATION
  Report Type: 
  Country: None (occurrence: None)
  Receive Date: 20060310
  Receipt Date: 20060228
  Transmission Date: 20060701
  Serious: Yes (Other)
  Sender: FDA-Public Use
  Company Number: FR-SANOFI-SYNTHELABO-A02200600557

PATIENT
  Sex: Male

DRUGS (7)
  1. DANATROL [Suspect]
     Indication: THROMBOCYTOPENIA
     Route: 048
     Dates: start: 20051213, end: 20060128
  2. CORTANCYL [Concomitant]
     Dosage: 80 MG
     Route: 048
     Dates: start: 20051018, end: 20060115
  3. ZOCOR [Concomitant]
     Dosage: UNK
     Route: 048
     Dates: end: 20060131
  4. EUPANTOL [Concomitant]
     Dosage: UNK
     Route: 048
     Dates: end: 20051103
  5. COVERSYL [Concomitant]
     Route: 048
  6. ATENOLOL [Concomitant]
     Route: 048
  7. ZANIDIP [Concomitant]
     Route: 048

REACTIONS (5)
  - ALANINE AMINOTRANSFERASE INCREASED [None]
  - ASPARTATE AMINOTRANSFERASE INCREASED [None]
  - ASTHENIA [None]
  - BLOOD CREATINE PHOSPHOKINASE INCREASED [None]
  - PAIN IN EXTREMITY [None]
